FAERS Safety Report 5667427-1 (Version None)
Quarter: 2008Q1

REPORT INFORMATION
  Report Type: 
  Country: None (occurrence: None)
  Receive Date: 20080315
  Receipt Date: 20080121
  Transmission Date: 20080703
  Serious: No
  Sender: FDA-Public Use
  Company Number: US-ABBOTT-08P-163-0434740-00

PATIENT
  Sex: Female
  Weight: 77.634 kg

DRUGS (5)
  1. HUMIRA [Suspect]
     Indication: PSORIASIS
     Route: 058
     Dates: start: 20070601, end: 20071001
  2. INFLIXIMAB [Concomitant]
     Indication: PSORIASIS
     Route: 048
  3. METHOTREXATE [Concomitant]
     Indication: PSORIASIS
     Route: 048
  4. METFORMIN [Concomitant]
     Indication: POLYCYSTIC OVARIES
     Route: 048
  5. LISINOPRIL [Concomitant]
     Indication: HYPERTENSION
     Route: 048

REACTIONS (1)
  - DRUG INEFFECTIVE [None]
